FAERS Safety Report 22614238 (Version 1)
Quarter: 2023Q2

REPORT INFORMATION
  Report Type: Spontaneous
  Country: EU (occurrence: EU)
  Receive Date: 20230619
  Receipt Date: 20230619
  Transmission Date: 20230721
  Serious: Yes (Hospitalization, Other)
  Sender: FDA-Public Use
  Company Number: None

PATIENT
  Age: 64 Year
  Sex: Male

DRUGS (7)
  1. METHOTREXATE SODIUM [Suspect]
     Active Substance: METHOTREXATE SODIUM
     Indication: Psoriatic arthropathy
     Dosage: 17.5 MG, DAILY
     Route: 048
     Dates: start: 2013
  2. FOLIC ACID [Concomitant]
     Active Substance: FOLIC ACID
     Indication: Psoriatic arthropathy
  3. OLMESARTAN MEDOXOMIL [Concomitant]
     Active Substance: OLMESARTAN MEDOXOMIL
  4. SIMVASTATIN [Concomitant]
     Active Substance: SIMVASTATIN
  5. SAXAGLIPTIN [Concomitant]
     Active Substance: SAXAGLIPTIN
  6. CALCIPOTRIOL, BETAMETHASONE DIPROPIONATE (PH. EUR.) [Concomitant]
     Dosage: 05MG / G + 0.05MG / G
  7. ALLOPURINOL [Concomitant]
     Active Substance: ALLOPURINOL

REACTIONS (11)
  - Immunosuppression [Recovered/Resolved]
  - Oral candidiasis [Recovered/Resolved]
  - Dysphagia [Recovered/Resolved]
  - Rash pruritic [Recovered/Resolved]
  - Stomatitis [Recovered/Resolved]
  - Toxicity to various agents [Recovered/Resolved]
  - Oropharyngeal swelling [Recovered/Resolved]
  - Hepatotoxicity [Recovered/Resolved]
  - Breath odour [Recovered/Resolved]
  - Face oedema [Recovered/Resolved]
  - Myelosuppression [Recovered/Resolved]
